FAERS Safety Report 12497155 (Version 2)
Quarter: 2016Q3

REPORT INFORMATION
  Report Type: Spontaneous
  Country: US (occurrence: US)
  Receive Date: 20160624
  Receipt Date: 20160812
  Transmission Date: 20161109
  Serious: No
  Sender: FDA-Public Use
  Company Number: US-GLAXOSMITHKLINE-US2016087321

PATIENT
  Age: 44 Year
  Sex: Female

DRUGS (8)
  1. CRESTOR [Concomitant]
     Active Substance: ROSUVASTATIN CALCIUM
  2. OMEPRAZOLE. [Concomitant]
     Active Substance: OMEPRAZOLE
  3. TOPIRAMATE. [Concomitant]
     Active Substance: TOPIRAMATE
  4. VITAMIN C [Concomitant]
     Active Substance: ASCORBIC ACID
  5. IMITREX [Suspect]
     Active Substance: SUMATRIPTAN SUCCINATE
     Indication: MIGRAINE
     Dosage: 6 MG, UNK
     Route: 058
     Dates: start: 20160602
  6. MAGNESIUM [Concomitant]
     Active Substance: MAGNESIUM
  7. PROPRANOLOL [Concomitant]
     Active Substance: PROPRANOLOL\PROPRANOLOL HYDROCHLORIDE
  8. IMITREX [Suspect]
     Active Substance: SUMATRIPTAN SUCCINATE
     Dosage: 6 MG, UNK
     Route: 058
     Dates: start: 20160617

REACTIONS (4)
  - Product quality issue [Unknown]
  - Device use error [Unknown]
  - Foreign body [Unknown]
  - Needle issue [Unknown]

NARRATIVE: CASE EVENT DATE: 20160617
